FAERS Safety Report 24585257 (Version 2)
Quarter: 2025Q4

REPORT INFORMATION
  Report Type: Spontaneous
  Country: JP (occurrence: JP)
  Receive Date: 20241106
  Receipt Date: 20251017
  Transmission Date: 20260118
  Serious: Yes (Other)
  Sender: JAZZ
  Company Number: JP-JAZZ PHARMACEUTICALS-2024-JP-020084

PATIENT
  Age: 72 Year
  Sex: Male

DRUGS (2)
  1. VYXEOS [Suspect]
     Active Substance: CYTARABINE\DAUNORUBICIN
     Indication: Acute myeloid leukaemia
     Dosage: UNK
  2. GRANULOCYTE COLONY-STIMULATING FACTOR NOS [Suspect]
     Active Substance: GRANULOCYTE COLONY-STIMULATING FACTOR NOS
     Indication: Product used for unknown indication
     Dosage: UNK

REACTIONS (8)
  - Gastrointestinal haemorrhage [Unknown]
  - Febrile neutropenia [Unknown]
  - Sepsis [Unknown]
  - Pneumonia fungal [Unknown]
  - Staphylococcus test positive [Unknown]
  - Staphylococcus test positive [Unknown]
  - Staphylococcal infection [Unknown]
  - Staphylococcus test positive [Unknown]
